FAERS Safety Report 4665567-7 (Version None)
Quarter: 2005Q2

REPORT INFORMATION
  Report Type: 
  Country: None (occurrence: None)
  Receive Date: 20050519
  Receipt Date: 20041203
  Transmission Date: 20051028
  Serious: No
  Sender: FDA-Public Use
  Company Number: US-BRISTOL-MYERS SQUIBB COMPANY-12783916

PATIENT
  Age: 74 Year
  Sex: Male
  Weight: 73 kg

DRUGS (2)
  1. MONOPRIL [Suspect]
     Indication: HYPERTENSION
     Dosage: DURATION OF THERAPY:  SEVERAL MONTHS
     Route: 048
  2. TAMOXIFEN [Concomitant]

REACTIONS (2)
  - NAUSEA [None]
  - VERTIGO [None]
